FAERS Safety Report 7220019-5 (Version None)
Quarter: 2011Q1

REPORT INFORMATION
  Report Type: 
  Country: None (occurrence: None)
  Receive Date: 20110111
  Receipt Date: 20110103
  Transmission Date: 20110831
  Serious: Yes (Hospitalization, Other)
  Sender: FDA-Public Use
  Company Number: US-PURDUE-USA-2011-0061720

PATIENT
  Sex: Female

DRUGS (9)
  1. LAMOTRIGINE [Concomitant]
     Indication: EPILEPSY
     Dosage: 500 MG, UNK
     Dates: start: 20031201
  2. ASPIRIN [Concomitant]
     Indication: PROPHYLAXIS
     Dosage: 81 MG, UNK
     Route: 048
     Dates: start: 20030701
  3. HYDROCHLOROTHIAZIDE [Concomitant]
     Indication: PRODUCT USED FOR UNKNOWN INDICATION
     Dosage: UNK, UNK
     Dates: end: 20100101
  4. DILAUDID [Suspect]
     Indication: PRODUCT USED FOR UNKNOWN INDICATION
     Dosage: UNK, UNK
     Route: 048
  5. METOPROLOL                         /00376902/ [Concomitant]
     Indication: HYPERTENSION
     Dosage: 25 MG, DAILY
     Route: 048
     Dates: start: 20100617
  6. E2007 (PERAMPANEL) (INVESTIGATIONAL DRUG) [Suspect]
     Indication: PARTIAL SEIZURES
     Dosage: 12 MG, DAILY
     Route: 048
     Dates: start: 20090515, end: 20100729
  7. LISINOPRIL [Concomitant]
     Indication: HYPERTENSION
     Dosage: 1 TABLET, DAILY
     Route: 048
     Dates: start: 20090123, end: 20100602
  8. LOPERAMIDE HYDROCHLORIDE [Concomitant]
     Indication: DIARRHOEA
     Dosage: 2 MG, UNK
     Route: 048
     Dates: start: 20090122
  9. CARBAMAZEPINE [Concomitant]
     Indication: EPILEPSY
     Dosage: 450 MG, UNK
     Dates: start: 19960101

REACTIONS (10)
  - ACUTE PSYCHOSIS [None]
  - HYPOVOLAEMIA [None]
  - HYPOCHLORAEMIA [None]
  - CONTUSION [None]
  - CONVULSION [None]
  - DIZZINESS [None]
  - MUSCLE STRAIN [None]
  - HYPONATRAEMIA [None]
  - ANAEMIA [None]
  - NAUSEA [None]
